FAERS Safety Report 5894889-7 (Version None)
Quarter: 2008Q3

REPORT INFORMATION
  Report Type: 
  Country: None (occurrence: None)
  Receive Date: 20080924
  Receipt Date: 20080912
  Transmission Date: 20090109
  Serious: Yes (Hospitalization, Other)
  Sender: FDA-Public Use
  Company Number: PHHY2008FI21124

PATIENT
  Sex: Female

DRUGS (2)
  1. MIACALCIN [Suspect]
     Indication: HYPERCALCAEMIA
     Dosage: 400 IU, Q6H
     Dates: start: 20080910
  2. MIACALCIN [Suspect]
     Dosage: 500 IU/6HRS EVERY SECOND DAY

REACTIONS (5)
  - CAESAREAN SECTION [None]
  - DRUG EXPOSURE DURING PREGNANCY [None]
  - PRE-ECLAMPSIA [None]
  - PREMATURE LABOUR [None]
  - THYROID DISORDER [None]
